FAERS Safety Report 25541599 (Version 3)
Quarter: 2025Q4

REPORT INFORMATION
  Report Type: Report from Study
  Country: CA (occurrence: CA)
  Receive Date: 20250711
  Receipt Date: 20251222
  Transmission Date: 20260119
  Serious: Yes (Hospitalization, Other)
  Sender: CELLTRION
  Company Number: CA-CELLTRION INC.-2025CA022083

PATIENT

DRUGS (10)
  1. INFLIXIMAB-DYYB [Suspect]
     Active Substance: INFLIXIMAB-DYYB
     Indication: Colitis ulcerative
     Dosage: MAINTENANCE - 400 MG EVERY 8 WEEKS
     Route: 042
     Dates: start: 20250531
  2. INFLIXIMAB-DYYB [Suspect]
     Active Substance: INFLIXIMAB-DYYB
     Dosage: 10 MG/KG Q 8 WEEKS
     Route: 042
     Dates: start: 20250531
  3. PREDNISONE [Concomitant]
     Active Substance: PREDNISONE
     Dosage: TAPERING DOSE 40 MG FOR 7 DAYS
  4. PREDNISONE [Concomitant]
     Active Substance: PREDNISONE
     Dosage: TAPERING DOSE 35 MG FOR 7 DAYS
  5. PREDNISONE [Concomitant]
     Active Substance: PREDNISONE
     Dosage: TAPERING DOSE 30 MG FOR 7 DAYS
  6. PREDNISONE [Concomitant]
     Active Substance: PREDNISONE
     Dosage: TAPERING DOSE 25 MG FOR 7 DAYS
  7. PREDNISONE [Concomitant]
     Active Substance: PREDNISONE
     Dosage: TAPERING DOSE 20 MG FOR 7 DAYS
  8. TYLENOL [Concomitant]
     Active Substance: ACETAMINOPHEN
     Dosage: 325-650 MG EVERY 4 HOURS AS NEEDED
     Route: 048
  9. PANTOPRAZOLE SODIUM [Concomitant]
     Active Substance: PANTOPRAZOLE SODIUM
     Dosage: 40 MG, DAILY
     Route: 048
  10. MORPHINE [Concomitant]
     Active Substance: MORPHINE
     Dosage: EVERY 4-6 HOURS P.O DAILY PRN
     Route: 048

REACTIONS (6)
  - Colitis ulcerative [Recovered/Resolved]
  - Pulmonary embolism [Recovering/Resolving]
  - Haematochezia [Recovering/Resolving]
  - Therapy interrupted [Unknown]
  - Underdose [Unknown]
  - Intentional product use issue [Unknown]

NARRATIVE: CASE EVENT DATE: 20251013
